FAERS Safety Report 16910377 (Version 1)
Quarter: 2019Q4

REPORT INFORMATION
  Report Type: Spontaneous
  Country: GB (occurrence: GB)
  Receive Date: 20191011
  Receipt Date: 20191011
  Transmission Date: 20200122
  Serious: Yes (Death, Other)
  Sender: FDA-Public Use
  Company Number: GB-JAZZ-2019-GB-013982

PATIENT

DRUGS (1)
  1. VYXEOS [Suspect]
     Active Substance: CYTARABINE\DAUNORUBICIN
     Indication: ACUTE MYELOID LEUKAEMIA
     Dosage: UNK

REACTIONS (8)
  - Transplantation complication [Fatal]
  - Leukaemia recurrent [Fatal]
  - Hepatotoxicity [Unknown]
  - Cerebrovascular accident [Unknown]
  - Neutropenic sepsis [Unknown]
  - Acute myeloid leukaemia [Fatal]
  - Nephropathy toxic [Unknown]
  - Cerebral haemorrhage [Unknown]
